FAERS Safety Report 10182385 (Version 2)
Quarter: 2014Q2

REPORT INFORMATION
  Report Type: Other
  Country: US (occurrence: US)
  Receive Date: 20140520
  Receipt Date: 20140617
  Transmission Date: 20141212
  Serious: Yes (Other)
  Sender: FDA-Public Use
  Company Number: US-SHIRE-US201402159

PATIENT
  Age: 11 Year
  Sex: Male
  Weight: 33.11 kg

DRUGS (1)
  1. VYVANSE [Suspect]
     Indication: ATTENTION DEFICIT/HYPERACTIVITY DISORDER
     Dosage: 50 MG, 1X/DAY:QD
     Route: 048
     Dates: start: 2009

REACTIONS (7)
  - Heart rate increased [Recovered/Resolved]
  - Chest pain [Recovered/Resolved]
  - Pain [Recovered/Resolved]
  - Restlessness [Unknown]
  - Dyspnoea [Recovered/Resolved]
  - Drug effect decreased [Recovered/Resolved]
  - Drug effect increased [Recovered/Resolved]
